FAERS Safety Report 5016162-1 (Version None)
Quarter: 2006Q2

REPORT INFORMATION
  Report Type: 
  Country: None (occurrence: None)
  Receive Date: 20060414
  Receipt Date: 20060210
  Transmission Date: 20061013
  Serious: No
  Sender: FDA-Public Use
  Company Number: 2006SP000733

PATIENT
  Age: 41 Year
  Sex: Female

DRUGS (5)
  1. LUNESTA [Suspect]
     Indication: INSOMNIA
     Dosage: 2 MG;HS;ORAL
     Route: 048
     Dates: start: 20050615, end: 20050622
  2. DEPAKOTE [Concomitant]
  3. ABILIFY [Concomitant]
  4. PAXIL [Concomitant]
  5. KLONOPIN [Concomitant]

REACTIONS (1)
  - HALLUCINATION [None]
